FAERS Safety Report 23094368 (Version 2)
Quarter: 2023Q4

REPORT INFORMATION
  Report Type: Report from Study
  Country: CA (occurrence: CA)
  Receive Date: 20231023
  Receipt Date: 20231206
  Transmission Date: 20240110
  Serious: Yes (Other)
  Sender: FDA-Public Use
  Company Number: CA-JNJFOC-20211014862

PATIENT
  Age: 25 Year
  Sex: Female
  Weight: 62.2 kg

DRUGS (2)
  1. REMICADE [Suspect]
     Active Substance: INFLIXIMAB
     Indication: Crohn^s disease
     Dosage: PATIENT RECEIVED REMICADE TREATMENT ON 07-OCT-2021?BATCH NUMBER: 22L011
     Route: 042
     Dates: start: 20200330
  2. REMICADE [Suspect]
     Active Substance: INFLIXIMAB
     Route: 042

REACTIONS (13)
  - Groin abscess [Recovered/Resolved]
  - Vulval abscess [Recovered/Resolved]
  - Vulval disorder [Unknown]
  - Crohn^s disease [Recovering/Resolving]
  - Oral herpes [Recovering/Resolving]
  - Lichen sclerosus [Recovering/Resolving]
  - Stress [Unknown]
  - Dyspareunia [Unknown]
  - Anal skin tags [Unknown]
  - Pain in extremity [Unknown]
  - Headache [Recovered/Resolved]
  - Therapeutic product effect decreased [Unknown]
  - Off label use [Unknown]

NARRATIVE: CASE EVENT DATE: 20200330
